FAERS Safety Report 7569088-3 (Version None)
Quarter: 2011Q2

REPORT INFORMATION
  Report Type: 
  Country: None (occurrence: None)
  Receive Date: 20110623
  Receipt Date: 20110615
  Transmission Date: 20111010
  Serious: Yes (Other)
  Sender: FDA-Public Use
  Company Number: US-US-EMD SERONO, INC.-7065685

PATIENT
  Sex: Female

DRUGS (4)
  1. LIPITOR [Concomitant]
  2. PROVIGIL [Concomitant]
     Indication: FATIGUE
  3. ESTROGENIC SUBSTANCE [Concomitant]
  4. REBIF [Suspect]
     Indication: MULTIPLE SCLEROSIS
     Route: 058
     Dates: start: 20050721

REACTIONS (4)
  - PAIN [None]
  - HEADACHE [None]
  - CYSTOPEXY [None]
  - IMPAIRED HEALING [None]
